FAERS Safety Report 8455848-3 (Version None)
Quarter: 2012Q2

REPORT INFORMATION
  Report Type: 
  Country: None (occurrence: None)
  Receive Date: 20120621
  Receipt Date: 20120612
  Transmission Date: 20120825
  Serious: Yes (Hospitalization)
  Sender: FDA-Public Use
  Company Number: US-BAYER-201024439NA

PATIENT
  Age: 33 Year
  Sex: Female

DRUGS (3)
  1. YASMIN [Suspect]
     Route: 048
     Dates: start: 20010901
  2. SEREVENT [Concomitant]
     Indication: ASTHMA
     Dosage: 2 PUFF(S), BID
  3. PROVENTIL [Concomitant]
     Indication: ASTHMA
     Dosage: 2 PUFF(S), QID

REACTIONS (1)
  - PULMONARY EMBOLISM [None]
